FAERS Safety Report 14386020 (Version 3)
Quarter: 2018Q1

REPORT INFORMATION
  Report Type: Report from Study
  Country: US (occurrence: US)
  Receive Date: 20180115
  Receipt Date: 20180126
  Transmission Date: 20180509
  Serious: Yes (Hospitalization)
  Sender: FDA-Public Use
  Company Number: US-ELI_LILLY_AND_COMPANY-US201801004431

PATIENT
  Sex: Female

DRUGS (7)
  1. LANTUS [Concomitant]
     Active Substance: INSULIN GLARGINE
     Indication: PRODUCT USED FOR UNKNOWN INDICATION
     Dosage: 60 U, EACH MORNING
     Route: 065
  2. HUMULIN R U-500 [Suspect]
     Active Substance: INSULIN HUMAN
     Dosage: 200 U, DAILY
     Route: 058
  3. LANTUS [Concomitant]
     Active Substance: INSULIN GLARGINE
     Dosage: 70 U, EACH EVENING
     Route: 065
  4. HUMULIN R U-500 [Suspect]
     Active Substance: INSULIN HUMAN
     Indication: PRODUCT USED FOR UNKNOWN INDICATION
     Dosage: UNK, UNKNOWN
     Route: 065
     Dates: start: 2014
  5. HUMALOG [Suspect]
     Active Substance: INSULIN LISPRO
     Indication: PRODUCT USED FOR UNKNOWN INDICATION
     Dosage: UNK UNK, PRN
     Route: 065
     Dates: start: 2013
  6. HUMULIN R [Suspect]
     Active Substance: INSULIN HUMAN
     Indication: PRODUCT USED FOR UNKNOWN INDICATION
     Dosage: UNK, PRN
     Dates: start: 2014
  7. HUMALOG [Suspect]
     Active Substance: INSULIN LISPRO
     Indication: PRODUCT USED FOR UNKNOWN INDICATION
     Dosage: UNK, UNKNOWN
     Dates: start: 2013

REACTIONS (20)
  - Thyroid disorder [Unknown]
  - Protein urine present [Unknown]
  - Urinary incontinence [Unknown]
  - Joint injury [Unknown]
  - Arthralgia [Unknown]
  - Intentional product misuse [Unknown]
  - Bronchitis [Unknown]
  - Blood glucose decreased [Unknown]
  - Pancreatic cyst [Unknown]
  - Blood glucose increased [Unknown]
  - Lymphadenopathy [Unknown]
  - Cough [Unknown]
  - Oropharyngeal pain [Unknown]
  - Incorrect dose administered [Unknown]
  - Malaise [Unknown]
  - Dyspnoea [Unknown]
  - Injection site pain [Unknown]
  - Asthma [Unknown]
  - Weight decreased [Unknown]
  - Drug ineffective [Unknown]

NARRATIVE: CASE EVENT DATE: 2015
